FAERS Safety Report 17121465 (Version 1)
Quarter: 2019Q4

REPORT INFORMATION
  Report Type: Spontaneous
  Country: US (occurrence: US)
  Receive Date: 20191205
  Receipt Date: 20191205
  Transmission Date: 20200122
  Serious: Yes (Other)
  Sender: FDA-Public Use
  Company Number: None

PATIENT
  Age: 56 Year
  Sex: Female
  Weight: 80.74 kg

DRUGS (8)
  1. XGEVA [Concomitant]
     Active Substance: DENOSUMAB
  2. FASLODEX [Concomitant]
     Active Substance: FULVESTRANT
  3. LISINOPRIL-HCTZ [Concomitant]
     Active Substance: HYDROCHLOROTHIAZIDE\LISINOPRIL
  4. BISOPROLOL [Concomitant]
     Active Substance: BISOPROLOL
  5. MULTIVITAMIN [Concomitant]
     Active Substance: VITAMINS
  6. VERZENIO [Suspect]
     Active Substance: ABEMACICLIB
     Route: 048
  7. VITAMIN D [Concomitant]
     Active Substance: VITAMIN D NOS
  8. ZOFRAN ODT [Concomitant]
     Active Substance: ONDANSETRON HYDROCHLORIDE

REACTIONS (1)
  - Disease progression [None]

NARRATIVE: CASE EVENT DATE: 20191205
